FAERS Safety Report 16614128 (Version 1)
Quarter: 2019Q3

REPORT INFORMATION
  Report Type: Spontaneous
  Country: US (occurrence: US)
  Receive Date: 20190723
  Receipt Date: 20190723
  Transmission Date: 20191004
  Serious: Yes (Hospitalization)
  Sender: FDA-Public Use
  Company Number: US-BAYER-2019-136692

PATIENT
  Age: 92 Year
  Sex: Male
  Weight: 84 kg

DRUGS (4)
  1. ALEVE [Suspect]
     Active Substance: NAPROXEN SODIUM
     Indication: PAIN
     Dosage: 2 IN THE MORNING AND 1 AT NIGHT
     Route: 048
  2. THERAGRAN [VITAMINS NOS] [Concomitant]
  3. FISH OIL [Concomitant]
     Active Substance: FISH OIL
  4. SAW PALMETTO [CUCURBITA PEPO OIL;SERENOA REPENS;ZINC GLUCONATE] [Concomitant]

REACTIONS (3)
  - Rectal haemorrhage [Unknown]
  - Haematochezia [Unknown]
  - Faeces discoloured [Unknown]
